FAERS Safety Report 4648270-9 (Version None)
Quarter: 2005Q2

REPORT INFORMATION
  Report Type: 
  Country: None (occurrence: None)
  Receive Date: 20050331
  Receipt Date: 20050208
  Transmission Date: 20051028
  Serious: No
  Sender: FDA-Public Use
  Company Number: 05P-163-0289825-00

PATIENT
  Age: 81 Year
  Sex: Male

DRUGS (8)
  1. HUMIRA [Suspect]
     Indication: RHEUMATOID ARTHRITIS
     Dosage: 40 MG, 1 IN 2 WK, SUBCUTANEOUS
     Route: 058
     Dates: start: 20030501, end: 20050101
  2. FOLIC ACID [Concomitant]
  3. IMODIUM [Concomitant]
  4. BUCINDOLOL HYDROCHLORIDE [Concomitant]
  5. TRAMADOL HCL [Concomitant]
  6. RABEPRAZOLE SODIUM [Concomitant]
  7. GABAPENTIN [Concomitant]
  8. FELODIPINE [Concomitant]

REACTIONS (1)
  - INJECTION SITE REACTION [None]
